FAERS Safety Report 7071681-1 (Version None)
Quarter: 2010Q4

REPORT INFORMATION
  Report Type: 
  Country: None (occurrence: None)
  Receive Date: 20101029
  Receipt Date: 20091007
  Transmission Date: 20110411
  Serious: No
  Sender: FDA-Public Use
  Company Number: A0810746A

PATIENT
  Age: 76 Year
  Sex: Male

DRUGS (7)
  1. ADVAIR DISKUS 100/50 [Suspect]
     Route: 055
  2. ALBUTEROL [Concomitant]
  3. SPIRIVA [Concomitant]
  4. BUPROPION [Concomitant]
  5. SERTRALINE HYDROCHLORIDE [Concomitant]
  6. AMITRIPTYLINE HCL [Concomitant]
  7. UNSPECIFIED MEDICATION [Concomitant]
     Indication: ANXIETY

REACTIONS (2)
  - COUGH [None]
  - NERVOUSNESS [None]
